FAERS Safety Report 8431867-8 (Version None)
Quarter: 2012Q2

REPORT INFORMATION
  Report Type: 
  Country: None (occurrence: None)
  Receive Date: 20120606
  Receipt Date: 20120207
  Transmission Date: 20120825
  Serious: Yes (Hospitalization)
  Sender: FDA-Public Use
  Company Number: 2005001460

PATIENT
  Age: 60 Year
  Sex: Female
  Weight: 79.8331 kg

DRUGS (3)
  1. TARCEVA [Suspect]
     Indication: BREAST CANCER
     Dosage: 100 MG, UID/QD, ORAL
     Route: 048
     Dates: start: 20050504
  2. TRASTUZUMAB (TRASTUZUMAB) INJECTION [Suspect]
     Indication: BREAST CANCER
     Dosage: 2 MG/KG OVER 30 MIN, 1 IN 28 DAYS, IV NOS
     Route: 042
     Dates: start: 20050504
  3. PACLITAXEL [Suspect]
     Indication: BREAST CANCER
     Dosage: 80 MG/M2 OVER 1 HR, 1 IN 28 DAYS, IV DRIP
     Route: 041
     Dates: start: 20050504

REACTIONS (13)
  - CULTURE STOOL POSITIVE [None]
  - LYMPHOEDEMA [None]
  - VOMITING [None]
  - INFECTION [None]
  - METASTASES TO LYMPH NODES [None]
  - DEHYDRATION [None]
  - METASTASES TO CHEST WALL [None]
  - CELLULITIS [None]
  - DIARRHOEA [None]
  - CANDIDIASIS [None]
  - FATIGUE [None]
  - NAUSEA [None]
  - PAIN IN EXTREMITY [None]
